FAERS Safety Report 17835056 (Version 1)
Quarter: 2020Q2

REPORT INFORMATION
  Report Type: Spontaneous
  Country: CN (occurrence: CN)
  Receive Date: 20200528
  Receipt Date: 20200528
  Transmission Date: 20200714
  Serious: Yes (Other)
  Sender: FDA-Public Use
  Company Number: CN-ROCHE-2610087

PATIENT
  Age: 49 Year
  Sex: Male

DRUGS (8)
  1. ALECENSA [Suspect]
     Active Substance: ALECTINIB HYDROCHLORIDE
     Indication: ADENOCARCINOMA
     Route: 065
     Dates: start: 20200117
  2. PAMIDRONATE DISODIUM. [Concomitant]
     Active Substance: PAMIDRONATE DISODIUM
     Route: 065
     Dates: start: 20191007
  3. ENDOSTATIN [Concomitant]
     Active Substance: ENDOSTATIN
     Indication: ADENOCARCINOMA
     Dosage: 8 CYCLES
     Route: 065
     Dates: start: 20190222, end: 20190801
  4. PAMIDRONATE DISODIUM. [Concomitant]
     Active Substance: PAMIDRONATE DISODIUM
     Indication: ADENOCARCINOMA
     Dosage: 8 CYCLES
     Route: 065
     Dates: start: 20190222, end: 20190801
  5. CRIZOTINIB [Concomitant]
     Active Substance: CRIZOTINIB
     Indication: ADENOCARCINOMA
     Route: 065
     Dates: start: 20191007
  6. PEMETREXED. [Concomitant]
     Active Substance: PEMETREXED
     Indication: ADENOCARCINOMA
     Dosage: 8 CYCLES
     Route: 065
     Dates: start: 20190222, end: 20190801
  7. CARBOPLATIN. [Concomitant]
     Active Substance: CARBOPLATIN
     Indication: ADENOCARCINOMA
     Dosage: 8 CYCLES
     Route: 065
     Dates: start: 20190222, end: 20190801
  8. CERITINIB [Concomitant]
     Active Substance: CERITINIB
     Indication: ADENOCARCINOMA
     Route: 065
     Dates: start: 20191111

REACTIONS (2)
  - Blood creatinine increased [Unknown]
  - Hyperkalaemia [Unknown]
